FAERS Safety Report 7985426-1 (Version None)
Quarter: 2011Q4

REPORT INFORMATION
  Report Type: 
  Country: None (occurrence: None)
  Receive Date: 20111216
  Receipt Date: 20111201
  Transmission Date: 20120403
  Serious: Yes (Other)
  Sender: FDA-Public Use
  Company Number: DE-JNJFOC-20111111979

PATIENT
  Sex: Female
  Weight: 71 kg

DRUGS (2)
  1. XARELTO [Suspect]
     Indication: THROMBOSIS PROPHYLAXIS
     Route: 065
  2. ANTI DIABETIC [Concomitant]
     Indication: DIABETES MELLITUS
     Route: 048

REACTIONS (1)
  - DEEP VEIN THROMBOSIS [None]
